FAERS Safety Report 5083210-2 (Version None)
Quarter: 2006Q3

REPORT INFORMATION
  Report Type: 
  Country: None (occurrence: None)
  Receive Date: 20060720
  Receipt Date: 20060406
  Transmission Date: 20061208
  Serious: Yes (Other)
  Sender: FDA-Public Use
  Company Number: 2006049132

PATIENT
  Age: 53 Year
  Sex: Female
  Weight: 99.7913 kg

DRUGS (1)
  1. CELEBREX [Suspect]
     Indication: PAIN
     Dosage: 200 MG, ORAL
     Route: 048
     Dates: start: 20060404, end: 20060405

REACTIONS (4)
  - FEELING HOT [None]
  - HYPERSENSITIVITY [None]
  - RASH MACULAR [None]
  - SWELLING [None]
